FAERS Safety Report 5188918-6 (Version None)
Quarter: 2006Q4

REPORT INFORMATION
  Report Type: 
  Country: None (occurrence: None)
  Receive Date: 20061215
  Receipt Date: 20061204
  Transmission Date: 20070319
  Serious: Yes (Hospitalization, Other)
  Sender: FDA-Public Use
  Company Number: 2005126482

PATIENT
  Age: 40 Year
  Sex: Female

DRUGS (6)
  1. NEURONTIN [Suspect]
     Indication: NEURALGIA
     Dosage: ORAL
     Route: 048
  2. ELAVIL [Suspect]
     Dosage: ORAL
     Route: 048
  3. ALCOHOL (ETHANOL) [Suspect]
     Dosage: ORAL
     Route: 048
  4. VALIUM [Concomitant]
  5. ULTRAM [Concomitant]
  6. BACLOFEN [Concomitant]

REACTIONS (8)
  - AGGRESSION [None]
  - ALCOHOL USE [None]
  - ANXIETY [None]
  - BACK PAIN [None]
  - CONDITION AGGRAVATED [None]
  - DEVICE INEFFECTIVE [None]
  - MULTIPLE DRUG OVERDOSE [None]
  - SUICIDE ATTEMPT [None]
